FAERS Safety Report 13063376 (Version 2)
Quarter: 2017Q1

REPORT INFORMATION
  Report Type: Spontaneous
  Country: US (occurrence: US)
  Receive Date: 20161227
  Receipt Date: 20170102
  Transmission Date: 20170428
  Serious: Yes (Other)
  Sender: FDA-Public Use
  Company Number: US-ROCHE-1871567

PATIENT
  Age: 63 Year
  Sex: Male
  Weight: 77.63 kg

DRUGS (10)
  1. COMPAZINE [Concomitant]
     Active Substance: PROCHLORPERAZINE MALEATE
  2. LOSARTAN. [Concomitant]
     Active Substance: LOSARTAN
  3. CHLORAMBUCIL [Concomitant]
     Active Substance: CHLORAMBUCIL
     Indication: CHRONIC LYMPHOCYTIC LEUKAEMIA
     Dosage: 40 MG GIVEN ONE PILL
     Route: 048
     Dates: start: 20161221, end: 20161221
  4. LEUKERAN [Concomitant]
     Active Substance: CHLORAMBUCIL
     Dosage: 1, 15 EACH CYCLE
     Route: 048
  5. MELOXICAM. [Concomitant]
     Active Substance: MELOXICAM
  6. GAZYVA [Suspect]
     Active Substance: OBINUTUZUMAB
     Indication: CHRONIC LYMPHOCYTIC LEUKAEMIA
     Dosage: 100  MG FOR CYCLE ONE DAY ONE AMOUNT
     Route: 042
     Dates: start: 20161221, end: 20161221
  7. ALLOPURINOL. [Concomitant]
     Active Substance: ALLOPURINOL
     Route: 065
  8. GABAPENTIN. [Concomitant]
     Active Substance: GABAPENTIN
  9. GAZYVA [Suspect]
     Active Substance: OBINUTUZUMAB
     Dosage: UNKNOWN AMT INFUSED 900 MG STARTED NOT COMPLETED
     Route: 042
     Dates: start: 20161222, end: 20161222
  10. CYCLOBENZAPRINE [Concomitant]
     Active Substance: CYCLOBENZAPRINE

REACTIONS (2)
  - Aspartate aminotransferase increased [Recovered/Resolved]
  - Alanine aminotransferase increased [Recovered/Resolved]

NARRATIVE: CASE EVENT DATE: 20161222
